FAERS Safety Report 4533242-5 (Version None)
Quarter: 2004Q4

REPORT INFORMATION
  Report Type: 
  Country: None (occurrence: None)
  Receive Date: 20041107
  Receipt Date: 20040930
  Transmission Date: 20050328
  Serious: Yes (Hospitalization)
  Sender: FDA-Public Use
  Company Number: 800072

PATIENT
  Age: 66 Year
  Sex: Male
  Weight: 95.2554 kg

DRUGS (7)
  1. DIANEAL [Suspect]
     Indication: DIABETIC NEPHROPATHY
     Dosage: 14.5 L; QD; INTRAPERITONEAL
     Route: 033
     Dates: start: 20030101
  2. INSULIN BASAL [Concomitant]
  3. INSULIN LISPRO [Concomitant]
  4. MEPHROCAPS [Concomitant]
  5. CALCITRIOL [Concomitant]
  6. NORVASC [Concomitant]
  7. NIFEREX [Concomitant]

REACTIONS (3)
  - ENTEROCOCCAL INFECTION [None]
  - PERITONITIS BACTERIAL [None]
  - STAPHYLOCOCCAL INFECTION [None]
